FAERS Safety Report 7221653-9 (Version None)
Quarter: 2011Q1

REPORT INFORMATION
  Report Type: 
  Country: None (occurrence: None)
  Receive Date: 20110112
  Receipt Date: 20101225
  Transmission Date: 20110831
  Serious: Yes (Other)
  Sender: FDA-Public Use
  Company Number: CH-PFIZER INC-2011005683

PATIENT
  Age: 89 Year
  Sex: Female

DRUGS (13)
  1. NEURONTIN [Suspect]
     Dosage: 300 MG, 3X/DAY
     Route: 048
  2. CALCIMAGON-D3 [Concomitant]
  3. MOVICOL [Concomitant]
     Dosage: 2 DF, UNK
     Route: 048
  4. BUPRENORPHINE HCL [Suspect]
     Dosage: 0.1 MG, 3X/DAY
     Route: 060
  5. TOREM [Concomitant]
     Dosage: 10 MG, 1X/DAY
     Route: 048
     Dates: start: 20101001
  6. NEXIUM [Concomitant]
     Dosage: 40 MG, 1X/DAY
     Route: 048
     Dates: start: 20101001
  7. PASPERTIN [Concomitant]
     Dosage: 10 MG, 3X/DAY
     Route: 058
     Dates: start: 20101001
  8. APROVEL [Concomitant]
     Dosage: 300 MG, 1X/DAY
     Route: 048
  9. MIDAZOLAM HCL [Suspect]
     Indication: PREMEDICATION
     Dosage: 3 MG, 1X/DAY
     Route: 040
     Dates: start: 20101221, end: 20101221
  10. TRAZODONE HCL [Suspect]
     Dosage: 50 MG, 1X/DAY
     Route: 048
  11. AMLODIPINE BESILATE [Concomitant]
     Dosage: 5 MG, 1X/DAY
     Route: 048
  12. ATARAX [Suspect]
     Indication: PREMEDICATION
     Dosage: 25 MG
     Route: 048
     Dates: start: 20101221, end: 20101221
  13. DAFALGAN [Concomitant]
     Dosage: 1 G, 3X/DAY
     Route: 048

REACTIONS (5)
  - COMA [None]
  - RESPIRATORY DEPRESSION [None]
  - OXYGEN SATURATION DECREASED [None]
  - TOXICITY TO VARIOUS AGENTS [None]
  - SOMNOLENCE [None]
